FAERS Safety Report 25039409 (Version 1)
Quarter: 2025Q1

REPORT INFORMATION
  Report Type: Spontaneous
  Country: DE (occurrence: DE)
  Receive Date: 20250305
  Receipt Date: 20250305
  Transmission Date: 20250409
  Serious: Yes (Other)
  Sender: ALKEM
  Company Number: None

PATIENT
  Age: 43 Year
  Sex: Female
  Weight: 125 kg

DRUGS (1)
  1. CEFUROXIME AXETIL [Suspect]
     Active Substance: CEFUROXIME AXETIL
     Indication: Bronchitis bacterial
     Dosage: 500 MILLIGRAM, BID (EVERY 0.5 DAY)
     Route: 048
     Dates: start: 20250216, end: 20250216

REACTIONS (9)
  - Anaphylactic shock [Recovering/Resolving]
  - Burning sensation [Unknown]
  - Dyspnoea [Unknown]
  - Oral discomfort [Unknown]
  - Paraesthesia oral [Unknown]
  - Pruritus [Unknown]
  - Swelling [Unknown]
  - Swelling face [Unknown]
  - Erythema [Unknown]

NARRATIVE: CASE EVENT DATE: 20250216
